FAERS Safety Report 9913920 (Version 1)
Quarter: 2014Q1

REPORT INFORMATION
  Report Type: Spontaneous
  Country: US (occurrence: None)
  Receive Date: 20140219
  Receipt Date: 20140219
  Transmission Date: 20141002
  Serious: Yes (Hospitalization, Disabling)
  Sender: FDA-Public Use
  Company Number: None

PATIENT
  Age: 45 Year
  Sex: Male
  Weight: 86.18 kg

DRUGS (3)
  1. LORAZEPAM [Suspect]
     Indication: ANXIETY
     Dosage: 1-2 AS NEEDED TAKEN BY MOUTH
     Route: 048
     Dates: start: 19901025, end: 20131001
  2. LORAZEPAM [Suspect]
     Indication: SLEEP DISORDER
     Dosage: 1-2 AS NEEDED TAKEN BY MOUTH
     Route: 048
     Dates: start: 19901025, end: 20131001
  3. AMBIEN [Suspect]
     Indication: SLEEP DISORDER
     Route: 048

REACTIONS (9)
  - Hypoaesthesia [None]
  - Dizziness [None]
  - Paraesthesia [None]
  - Abasia [None]
  - Arthritis [None]
  - Gastritis [None]
  - Gastric ulcer [None]
  - Anxiety [None]
  - Insomnia [None]
